FAERS Safety Report 11147575 (Version 1)
Quarter: 2015Q2

REPORT INFORMATION
  Report Type: Spontaneous
  Country: US (occurrence: US)
  Receive Date: 20150529
  Receipt Date: 20150529
  Transmission Date: 20150821
  Serious: Yes (Other)
  Sender: FDA-Public Use
  Company Number: US-AMGEN-USASL2014082992

PATIENT
  Age: 67 Year
  Sex: Female

DRUGS (5)
  1. GLUCOPHAGE [Concomitant]
     Active Substance: METFORMIN HYDROCHLORIDE
     Dosage: UNK
  2. PROLIA [Suspect]
     Active Substance: DENOSUMAB
     Indication: OSTEOPOROSIS POSTMENOPAUSAL
     Dosage: UNK
     Route: 065
     Dates: start: 201405
  3. HUMULIN N [Concomitant]
     Active Substance: INSULIN HUMAN
     Dosage: UNK
     Dates: end: 201410
  4. LEVEMIR [Concomitant]
     Active Substance: INSULIN DETEMIR
     Dosage: UNK
  5. GLIPIZIDE. [Concomitant]
     Active Substance: GLIPIZIDE
     Dosage: UNK

REACTIONS (21)
  - Oropharyngeal pain [Unknown]
  - Drug ineffective [Unknown]
  - Staphylococcal infection [Unknown]
  - Oral infection [Unknown]
  - Sinusitis [Unknown]
  - Cough [Unknown]
  - Productive cough [Unknown]
  - Rash macular [Unknown]
  - Gingivitis [Unknown]
  - Asthenia [Unknown]
  - Hypersensitivity [Unknown]
  - Pain [Unknown]
  - Sneezing [Unknown]
  - Glycosylated haemoglobin increased [Unknown]
  - Flatulence [Not Recovered/Not Resolved]
  - Immune system disorder [Unknown]
  - Tooth infection [Unknown]
  - Pharyngitis [Unknown]
  - Headache [Unknown]
  - Blood glucose abnormal [Unknown]
  - Spinal column stenosis [Unknown]

NARRATIVE: CASE EVENT DATE: 2014
